FAERS Safety Report 24309845 (Version 2)
Quarter: 2024Q3

REPORT INFORMATION
  Report Type: Spontaneous
  Country: BR (occurrence: BR)
  Receive Date: 20240912
  Receipt Date: 20240921
  Transmission Date: 20241016
  Serious: No
  Sender: CELLTRION
  Company Number: BR-CELLTRION INC.-2024BR021425

PATIENT

DRUGS (5)
  1. INFLIXIMAB [Suspect]
     Active Substance: INFLIXIMAB
     Indication: Psoriasis
     Dosage: 5 AMPOULES OF 100MG EACH (500MG TOTAL), EVERY 2 MONTHS
     Route: 042
     Dates: start: 20220728
  2. INFLIXIMAB [Suspect]
     Active Substance: INFLIXIMAB
     Dosage: 5 AMPOULES OF 100MG EACH (500MG TOTAL), EVERY 2 MONTHS
     Route: 042
     Dates: start: 20240910
  3. LOSARTAN [Concomitant]
     Active Substance: LOSARTAN\LOSARTAN POTASSIUM
     Indication: Hypertension
     Dosage: 2 TABLETS A DAY APPROXIMATELY 2 YEARS AGO
     Route: 048
  4. HYDROCHLOROTHIAZIDE [Concomitant]
     Active Substance: HYDROCHLOROTHIAZIDE
     Indication: Hypertension
     Dosage: 1 TABLET A DAY APPROXIMATELY 2 YEARS AGGO
     Route: 048
  5. DIAZEPAM [Concomitant]
     Active Substance: DIAZEPAM
     Indication: Sleep disorder
     Dosage: 1 TABLET A DAY APPROXIMATELY 10 YEARS AGO
     Route: 048

REACTIONS (2)
  - Psoriasis [Unknown]
  - Intentional dose omission [Unknown]

NARRATIVE: CASE EVENT DATE: 20240719
